FAERS Safety Report 20353638 (Version 1)
Quarter: 2022Q1

REPORT INFORMATION
  Report Type: Spontaneous
  Country: US (occurrence: None)
  Receive Date: 20220120
  Receipt Date: 20220120
  Transmission Date: 20220423
  Serious: No
  Sender: FDA-Public Use
  Company Number: US-USWM, LLC-UWM202101-000004

PATIENT
  Age: 28 Year
  Sex: Female
  Weight: 58.96 kg

DRUGS (3)
  1. NADOLOL [Suspect]
     Active Substance: NADOLOL
     Indication: Ventricular tachycardia
  2. ZOLOFT [Concomitant]
     Active Substance: SERTRALINE HYDROCHLORIDE
     Dosage: 50 MG
  3. TROKENDI XR [Concomitant]
     Active Substance: TOPIRAMATE
     Indication: Migraine
     Dosage: NOT PROVIDED

REACTIONS (2)
  - Paraesthesia [Unknown]
  - Product use in unapproved indication [Unknown]

NARRATIVE: CASE EVENT DATE: 20201231
